FAERS Safety Report 6550098-X (Version None)
Quarter: 2010Q1

REPORT INFORMATION
  Report Type: 
  Country: None (occurrence: None)
  Receive Date: 20100125
  Receipt Date: 20100115
  Transmission Date: 20100710
  Serious: Yes (Death, Hospitalization)
  Sender: FDA-Public Use
  Company Number: US-PFIZER INC-2010001613

PATIENT
  Age: 28 Year
  Sex: Female

DRUGS (6)
  1. AZITHROMYCIN [Suspect]
     Dosage: UNK
     Route: 065
     Dates: start: 20080101
  2. METRONIDAZOLE AND METRONIDAZOLE BENZOATE AND METRONIDAZOLE HYDROCHLORI [Suspect]
     Dosage: UNK
     Route: 065
     Dates: start: 20080101
  3. IBUPROFEN [Suspect]
     Dosage: UNK
     Route: 065
     Dates: start: 20080101
  4. CARISOPRODOL [Suspect]
     Dosage: UNK
     Route: 065
     Dates: start: 20080101
  5. ACYCLOVIR [Suspect]
     Dosage: UNK
     Route: 065
     Dates: start: 20080101
  6. PSEUDOEPHEDRINE HCL W/GUAIFENESIN [Suspect]
     Dosage: UNK
     Route: 065
     Dates: start: 20080101

REACTIONS (3)
  - CARDIAC ARREST [None]
  - DEATH [None]
  - RESPIRATORY ARREST [None]
